FAERS Safety Report 5118710-X (Version None)
Quarter: 2006Q4

REPORT INFORMATION
  Report Type: 
  Country: None (occurrence: None)
  Receive Date: 20061002
  Receipt Date: 20060921
  Transmission Date: 20070319
  Serious: Yes (Other)
  Sender: FDA-Public Use
  Company Number: US-JNJFOC-20060905136

PATIENT
  Sex: Male

DRUGS (7)
  1. REMICADE [Suspect]
     Indication: RHEUMATOID ARTHRITIS
     Route: 042
  2. ASPIRIN [Concomitant]
  3. CELEXA [Concomitant]
  4. METHOTREXATE [Concomitant]
  5. MULTIVITAMIN [Concomitant]
  6. CALCIUM+D [Concomitant]
  7. MSC GLUCOSAMINE [Concomitant]

REACTIONS (1)
  - SKIN CANCER [None]
